FAERS Safety Report 9321848 (Version 1)
Quarter: 2013Q2

REPORT INFORMATION
  Report Type: Spontaneous
  Country: US (occurrence: None)
  Receive Date: 20130530
  Receipt Date: 20130530
  Transmission Date: 20140414
  Serious: Yes (Hospitalization)
  Sender: FDA-Public Use
  Company Number: None

PATIENT
  Age: 48 Year
  Sex: Male
  Weight: 92.5 kg

DRUGS (1)
  1. REGADENOSON [Suspect]
     Route: 042
     Dates: start: 20121227, end: 20121227

REACTIONS (2)
  - Chest pain [None]
  - Dyspnoea [None]
